FAERS Safety Report 8174033 (Version 3)
Quarter: 2017Q2

REPORT INFORMATION
  Report Type: Report from Study
  Country: JP (occurrence: JP)
  Receive Date: 20111010
  Receipt Date: 20170519
  Transmission Date: 20170830
  Serious: Yes (Death, Other)
  Sender: FDA-Public Use
  Company Number: PHHY2011JP88942

PATIENT
  Age: 81 Year
  Sex: Male
  Weight: 55 kg

DRUGS (5)
  1. DIOVAN [Suspect]
     Active Substance: VALSARTAN
     Indication: HYPERTENSION
     Dosage: 40 MG, UNK
     Route: 048
  2. CARVEDILOL. [Concomitant]
     Active Substance: CARVEDILOL
     Indication: HYPERTENSION
     Dosage: 10 MG,
     Route: 048
     Dates: start: 20071214
  3. RASILEZ [Suspect]
     Active Substance: ALISKIREN
     Indication: HYPERTENSION
     Dosage: 150 MG, QD
     Route: 048
     Dates: start: 20101224
  4. DIOVAN [Suspect]
     Active Substance: VALSARTAN
     Dosage: 40 MG, QD
     Route: 048
     Dates: start: 20030715, end: 20070912
  5. RASILEZ [Suspect]
     Active Substance: ALISKIREN
     Dosage: 150 MG, QD
     Route: 048
     Dates: start: 20101224, end: 20110523

REACTIONS (7)
  - Wheezing [Fatal]
  - Oxygen saturation decreased [Fatal]
  - Haemoptysis [Fatal]
  - Respiratory failure [Fatal]
  - Pneumonia [Fatal]
  - Pyrexia [Fatal]
  - Photosensitivity reaction [Unknown]

NARRATIVE: CASE EVENT DATE: 20070912
